FAERS Safety Report 7179202-X (Version None)
Quarter: 2010Q4

REPORT INFORMATION
  Report Type: 
  Country: None (occurrence: None)
  Receive Date: 20101221
  Receipt Date: 20101210
  Transmission Date: 20110411
  Serious: Yes (Hospitalization)
  Sender: FDA-Public Use
  Company Number: FR-NOVOPROD-320054

PATIENT
  Age: 55 Year
  Sex: Male

DRUGS (7)
  1. LEVEMIR [Suspect]
     Indication: TYPE 2 DIABETES MELLITUS
     Dosage: 12 IU, QD
     Route: 058
  2. HUMALOG [Suspect]
     Dosage: UNK
     Route: 048
  3. AVLOCARDYL                         /00030001/ [Suspect]
     Dosage: UNK
     Route: 048
  4. NEXIUM [Suspect]
     Dosage: UNK
     Route: 048
  5. EZETIMIBE/SIMVASTATIN [Suspect]
     Dosage: UNK
     Route: 048
  6. ACETAMINOPHEN W/ PROPOXYPHENE HCL [Suspect]
     Dosage: UNK
     Route: 048
  7. KARDEGIC [Concomitant]

REACTIONS (2)
  - ECZEMA [None]
  - RASH MACULO-PAPULAR [None]
